FAERS Safety Report 4756524-0 (Version None)
Quarter: 2005Q3

REPORT INFORMATION
  Report Type: 
  Country: None (occurrence: None)
  Receive Date: 20050830
  Receipt Date: 20050720
  Transmission Date: 20060218
  Serious: No
  Sender: FDA-Public Use
  Company Number: US-GLAXOSMITHKLINE-A0567230A

PATIENT
  Age: 38 Year
  Sex: Female

DRUGS (3)
  1. WELLBUTRIN XL [Suspect]
     Dosage: 150MG PER DAY
     Route: 048
     Dates: start: 20050601, end: 20050701
  2. PRENATAL VITAMINS [Concomitant]
     Route: 048
  3. ASPIRIN [Concomitant]
     Route: 065

REACTIONS (1)
  - URTICARIA [None]
